FAERS Safety Report 4612921-5 (Version None)
Quarter: 2005Q1

REPORT INFORMATION
  Report Type: 
  Country: None (occurrence: None)
  Receive Date: 20050318
  Receipt Date: 20031203
  Transmission Date: 20050727
  Serious: Yes (Death, Hospitalization)
  Sender: FDA-Public Use
  Company Number: US-ROCHE-353313

PATIENT
  Age: 53 Year
  Sex: Female
  Weight: 58.5 kg

DRUGS (2)
  1. PEGASYS [Suspect]
     Route: 030
     Dates: start: 20030908
  2. RIBAVIRIN [Suspect]
     Route: 048
     Dates: start: 20030908, end: 20031009

REACTIONS (8)
  - ABDOMINAL DISTENSION [None]
  - CELLULITIS [None]
  - GASTROINTESTINAL HAEMORRHAGE [None]
  - GASTROINTESTINAL NECROSIS [None]
  - INTESTINAL ISCHAEMIA [None]
  - JAUNDICE [None]
  - NAUSEA [None]
  - SEPSIS [None]
